FAERS Safety Report 11646293 (Version 2)
Quarter: 2016Q2

REPORT INFORMATION
  Report Type: Spontaneous
  Country: US (occurrence: US)
  Receive Date: 20151020
  Receipt Date: 20160429
  Transmission Date: 20160815
  Serious: No
  Sender: FDA-Public Use
  Company Number: US-ROCHE-1617640

PATIENT
  Sex: Female

DRUGS (13)
  1. KLOR-CON M10 [Concomitant]
     Active Substance: POTASSIUM CHLORIDE
  2. BACTRIM [Concomitant]
     Active Substance: SULFAMETHOXAZOLE\TRIMETHOPRIM
  3. ESBRIET [Suspect]
     Active Substance: PIRFENIDONE
     Route: 048
  4. DYAZIDE [Concomitant]
     Active Substance: HYDROCHLOROTHIAZIDE\TRIAMTERENE
  5. VERAMYST [Concomitant]
     Active Substance: FLUTICASONE FUROATE
  6. ESBRIET [Suspect]
     Active Substance: PIRFENIDONE
     Indication: IDIOPATHIC PULMONARY FIBROSIS
     Dosage: 2 CAPSULES THRICE A DAY.
     Route: 048
     Dates: start: 20150418
  7. ALLOPURINOL. [Concomitant]
     Active Substance: ALLOPURINOL
  8. PROMETHAZINE [Concomitant]
     Active Substance: PROMETHAZINE\PROMETHAZINE HYDROCHLORIDE
  9. SUDAFED (UNITED STATES) [Concomitant]
  10. PRAVASTATIN [Concomitant]
     Active Substance: PRAVASTATIN\PRAVASTATIN SODIUM
  11. NEXIUM [Concomitant]
     Active Substance: ESOMEPRAZOLE MAGNESIUM
  12. PRILOSEC [Concomitant]
     Active Substance: OMEPRAZOLE MAGNESIUM
  13. TRAMADOL. [Concomitant]
     Active Substance: TRAMADOL

REACTIONS (7)
  - Fear [Unknown]
  - Haematochezia [Unknown]
  - Nausea [Unknown]
  - Diarrhoea [Unknown]
  - Drug dose omission [Unknown]
  - Malaise [Unknown]
  - Dyspepsia [Unknown]
